FAERS Safety Report 18748789 (Version 1)
Quarter: 2021Q1

REPORT INFORMATION
  Report Type: Spontaneous
  Country: US (occurrence: US)
  Receive Date: 20210116
  Receipt Date: 20210116
  Transmission Date: 20210419
  Serious: No
  Sender: FDA-Public Use
  Company Number: US-CELGENEUS-USA-20210102948

PATIENT
  Sex: Female

DRUGS (2)
  1. THALOMID [Suspect]
     Active Substance: THALIDOMIDE
     Indication: NEOPLASM
     Dosage: 50 MILLIGRAM AT BED TIME
     Route: 048
     Dates: start: 202008
  2. THALOMID [Suspect]
     Active Substance: THALIDOMIDE
     Indication: CARCINOID TUMOUR

REACTIONS (1)
  - Dry skin [Not Recovered/Not Resolved]
